FAERS Safety Report 23920148 (Version 2)
Quarter: 2024Q2

REPORT INFORMATION
  Report Type: Report from Study
  Country: CA (occurrence: CA)
  Receive Date: 20240530
  Receipt Date: 20240531
  Transmission Date: 20240716
  Serious: Yes (Life-Threatening, Other)
  Sender: FDA-Public Use
  Company Number: CA-JNJFOC-20210638952

PATIENT
  Age: 39 Year
  Sex: Female
  Weight: 98 kg

DRUGS (9)
  1. REMICADE [Suspect]
     Active Substance: INFLIXIMAB
     Indication: Colitis ulcerative
     Dosage: THERAPY STARTED: 29-OCT-2020
     Route: 041
     Dates: start: 20201116
  2. REMICADE [Suspect]
     Active Substance: INFLIXIMAB
     Dosage: DOSE ROUNDED TO 1000MG; STRENGTH 10 MG/KG?DOSE REPORTED AS 10MG/ KG
     Route: 041
     Dates: end: 20211110
  3. REMICADE [Suspect]
     Active Substance: INFLIXIMAB
     Route: 041
     Dates: start: 20231017
  4. REMICADE [Suspect]
     Active Substance: INFLIXIMAB
     Route: 041
  5. REMICADE [Suspect]
     Active Substance: INFLIXIMAB
     Route: 041
     Dates: start: 20240422, end: 20240521
  6. REMICADE [Suspect]
     Active Substance: INFLIXIMAB
     Route: 041
     Dates: start: 20201116, end: 20211010
  7. IMURAN [Concomitant]
     Active Substance: AZATHIOPRINE
     Route: 048
  8. TYLENOL [Concomitant]
     Active Substance: ACETAMINOPHEN
     Route: 048
  9. PREDNISONE [Concomitant]
     Active Substance: PREDNISONE
     Route: 048

REACTIONS (10)
  - Throat tightness [Recovering/Resolving]
  - Lip swelling [Recovering/Resolving]
  - Cellulitis [Not Recovered/Not Resolved]
  - Urticaria [Recovering/Resolving]
  - Infusion related reaction [Recovered/Resolved]
  - Colitis ulcerative [Unknown]
  - Inappropriate schedule of product administration [Unknown]
  - Off label use [Unknown]
  - Incorrect dose administered [Unknown]
  - Drug ineffective [Unknown]

NARRATIVE: CASE EVENT DATE: 20210613
